FAERS Safety Report 6840680-4 (Version None)
Quarter: 2010Q3

REPORT INFORMATION
  Report Type: 
  Country: None (occurrence: None)
  Receive Date: 20100714
  Receipt Date: 20100705
  Transmission Date: 20110219
  Serious: Yes (Life-Threatening, Hospitalization)
  Sender: FDA-Public Use
  Company Number: JP-ABBOTT-10P-087-0650236-00

PATIENT
  Sex: Female
  Weight: 48 kg

DRUGS (11)
  1. KLARICID TAB [Suspect]
     Indication: NASOPHARYNGITIS
     Route: 048
     Dates: start: 20100601, end: 20100603
  2. MUCOTRON [Suspect]
     Indication: NASOPHARYNGITIS
     Route: 048
     Dates: start: 20100601, end: 20100603
  3. OXATOMIDE [Suspect]
     Indication: NASOPHARYNGITIS
     Route: 048
     Dates: start: 20100601, end: 20100603
  4. SOLANTAL [Suspect]
     Indication: NASOPHARYNGITIS
     Route: 048
     Dates: start: 20100601, end: 20100603
  5. ASTOMIN [Suspect]
     Indication: NASOPHARYNGITIS
     Route: 048
     Dates: start: 20100601, end: 20100603
  6. ASVERIN [Suspect]
     Indication: NASOPHARYNGITIS
     Route: 048
     Dates: start: 20100601, end: 20100603
  7. ZITHROMAC [Suspect]
     Indication: NASOPHARYNGITIS
     Route: 048
     Dates: start: 20100603, end: 20100603
  8. ASVERIN SYR [Concomitant]
     Indication: NASOPHARYNGITIS
     Route: 048
     Dates: start: 20100601, end: 20100603
  9. MUCOTRON SYR [Concomitant]
     Indication: NASOPHARYNGITIS
     Route: 048
     Dates: start: 20100601, end: 20100603
  10. ASTOMIN TAB [Concomitant]
     Indication: NASOPHARYNGITIS
     Route: 048
     Dates: start: 20100601, end: 20100603
  11. SOLANTAL TAB [Concomitant]
     Indication: NASOPHARYNGITIS
     Route: 048
     Dates: start: 20100601, end: 20100603

REACTIONS (2)
  - STEVENS-JOHNSON SYNDROME [None]
  - TOXIC EPIDERMAL NECROLYSIS [None]
